FAERS Safety Report 7680930-8 (Version None)
Quarter: 2011Q3

REPORT INFORMATION
  Report Type: 
  Country: None (occurrence: None)
  Receive Date: 20110812
  Receipt Date: 20110809
  Transmission Date: 20111222
  Serious: Yes (Hospitalization)
  Sender: FDA-Public Use
  Company Number: JP-PFIZER INC-2011175032

PATIENT
  Age: 62 Year
  Sex: Male
  Weight: 76 kg

DRUGS (2)
  1. NORVASC [Suspect]
     Dosage: 5 MG, DAILY
     Route: 048
     Dates: start: 20110628, end: 20110722
  2. NORVASC [Suspect]
     Indication: HYPERTENSION
     Dosage: 2.5 MG, DAILY
     Route: 048
     Dates: start: 20110621, end: 20110627

REACTIONS (2)
  - HAEMOLYTIC ANAEMIA [None]
  - PYELONEPHRITIS [None]
